APPROVED DRUG PRODUCT: VICOPRIN
Active Ingredient: ASPIRIN; HYDROCODONE BITARTRATE
Strength: 500MG;5MG
Dosage Form/Route: TABLET;ORAL
Application: A086333 | Product #001
Applicant: ABBOTT LABORATORIES PHARMACEUTICAL PRODUCTS DIV
Approved: Sep 14, 1983 | RLD: No | RS: No | Type: DISCN